FAERS Safety Report 15561348 (Version 1)
Quarter: 2018Q4

REPORT INFORMATION
  Report Type: Spontaneous
  Country: US (occurrence: US)
  Receive Date: 20181026
  Receipt Date: 20181026
  Transmission Date: 20190205
  Serious: Yes (Life-Threatening, Hospitalization, Disabling)
  Sender: FDA-Public Use
  Company Number: None

PATIENT
  Age: 45 Year
  Sex: Male
  Weight: 90 kg

DRUGS (3)
  1. VICKS DAYQUIL [Concomitant]
     Active Substance: DEXTROMETHORPHAN HYDROBROMIDE\GUAIFENESIN
  2. EARTH KRATOM ORGANIC RED MAENG DA [Suspect]
     Active Substance: MITRAGYNINE\HERBALS
     Dosage: ?          QUANTITY:30 MG;?
     Route: 048
  3. VICKS NYQUIL [Concomitant]
     Active Substance: ACETAMINOPHEN\DEXTROMETHORPHAN HYDROBROMIDE\DOXYLAMINE SUCCINATE

REACTIONS (8)
  - Malaise [None]
  - Pain [None]
  - Hepatic failure [None]
  - Acute kidney injury [None]
  - Hepatic enzyme increased [None]
  - Fatigue [None]
  - Pneumonia [None]
  - Respiratory failure [None]

NARRATIVE: CASE EVENT DATE: 20181021
